FAERS Safety Report 21342461 (Version 4)
Quarter: 2023Q2

REPORT INFORMATION
  Report Type: Spontaneous
  Country: US (occurrence: US)
  Receive Date: 20220916
  Receipt Date: 20230607
  Transmission Date: 20230721
  Serious: No
  Sender: FDA-Public Use
  Company Number: US-PFIZER INC-PV202200065125

PATIENT
  Age: 63 Year
  Sex: Male

DRUGS (1)
  1. INLYTA [Suspect]
     Active Substance: AXITINIB
     Dosage: 5 MG

REACTIONS (6)
  - Fatigue [Unknown]
  - Stomatitis [Not Recovered/Not Resolved]
  - Dysphonia [Unknown]
  - Ear discomfort [Unknown]
  - Rash [Unknown]
  - Contusion [Not Recovered/Not Resolved]
